FAERS Safety Report 9184843 (Version 1)
Quarter: 2013Q1

REPORT INFORMATION
  Report Type: Spontaneous
  Country: US (occurrence: US)
  Receive Date: 20130325
  Receipt Date: 20130325
  Transmission Date: 20140127
  Serious: Yes (Death)
  Sender: FDA-Public Use
  Company Number: US-PFIZER INC-2006111647

PATIENT
  Age: 18 Year
  Sex: Male

DRUGS (7)
  1. IBUPROFEN [Suspect]
     Indication: SUICIDE ATTEMPT
     Route: 048
  2. NAPROXEN SODIUM [Suspect]
     Route: 048
  3. ESCITALOPRAM OXALATE [Suspect]
     Dosage: UNK
     Route: 048
  4. ACETAMINOPHEN W/CODEINE [Suspect]
     Indication: SUICIDE ATTEMPT
     Dosage: UNK
     Route: 048
  5. ASPIRIN [Suspect]
     Indication: SUICIDE ATTEMPT
     Route: 048
  6. CYCLOBENZAPRINE HCL [Suspect]
     Indication: SUICIDE ATTEMPT
     Dosage: UNK
     Route: 048
  7. PSEUDOEPHEDRINE [Suspect]
     Indication: SUICIDE ATTEMPT
     Dosage: UNK
     Route: 048

REACTIONS (7)
  - Completed suicide [Fatal]
  - Intentional overdose [Fatal]
  - Subarachnoid haemorrhage [Fatal]
  - Hepatic function abnormal [Fatal]
  - Respiratory failure [Fatal]
  - Renal impairment [Fatal]
  - Intentional overdose [Fatal]
